FAERS Safety Report 5353650-2 (Version None)
Quarter: 2007Q2

REPORT INFORMATION
  Report Type: 
  Country: None (occurrence: None)
  Receive Date: 20070612
  Receipt Date: 20070606
  Transmission Date: 20071010
  Serious: Yes (Hospitalization, Other)
  Sender: FDA-Public Use
  Company Number: JP-AVENTIS-200611124JP

PATIENT
  Age: 58 Year
  Sex: Male
  Weight: 73.9 kg

DRUGS (2)
  1. TAXOTERE [Suspect]
     Indication: HYPOPHARYNGEAL CANCER
     Route: 041
     Dates: start: 20050801, end: 20050822
  2. RADIOTHERAPY [Concomitant]
     Indication: HYPOPHARYNGEAL CANCER
     Dates: start: 20050801, end: 20050920

REACTIONS (2)
  - PHARYNGEAL NECROSIS [None]
  - ULCER [None]
